FAERS Safety Report 7275711-3 (Version None)
Quarter: 2011Q1

REPORT INFORMATION
  Report Type: 
  Country: None (occurrence: None)
  Receive Date: 20110125
  Receipt Date: 20110125
  Transmission Date: 20110831
  Serious: Yes (Other)
  Sender: FDA-Public Use
  Company Number: None

PATIENT
  Age: 25 Year
  Sex: Female
  Weight: 58 kg

DRUGS (2)
  1. MITOMYCIN [Suspect]
     Indication: SKIN CANCER
     Dosage: 10MG 1 IV
     Route: 042
     Dates: start: 20101228, end: 20101229
  2. PARACETAMOL 1000MG PFIZER [Suspect]
     Indication: PYREXIA
     Dosage: 1000MG 4 PO
     Route: 048
     Dates: start: 20101228, end: 20101229

REACTIONS (1)
  - HEADACHE [None]
